FAERS Safety Report 24270345 (Version 1)
Quarter: 2024Q3

REPORT INFORMATION
  Report Type: Spontaneous
  Country: US (occurrence: US)
  Receive Date: 20240830
  Receipt Date: 20240830
  Transmission Date: 20241016
  Serious: Yes (Other)
  Sender: BRISTOL MYERS SQUIBB
  Company Number: US-BRISTOL-MYERS SQUIBB COMPANY-2024-132610

PATIENT
  Age: 39 Year
  Sex: Male

DRUGS (8)
  1. TRIAMCINOLONE ACETONIDE [Suspect]
     Active Substance: TRIAMCINOLONE ACETONIDE
     Indication: Alopecia areata
     Dosage: IL-TAC INJECTIONS OF 2.5 MG/ML, 3ML TO THE SCALP
     Route: 026
     Dates: start: 201712
  2. TRIAMCINOLONE ACETONIDE [Suspect]
     Active Substance: TRIAMCINOLONE ACETONIDE
     Dosage: 2 CC, 2.5 MG/CC WERE ADMINISTERED EVERY 3 MONTHS.
     Route: 026
     Dates: start: 202010
  3. TRIAMCINOLONE ACETONIDE [Suspect]
     Active Substance: TRIAMCINOLONE ACETONIDE
     Dosage: 9 CC INJECTIONS TO THE SCALP AND EYEBROWS
     Route: 026
     Dates: start: 202201
  4. CLOBETASOL [Concomitant]
     Active Substance: CLOBETASOL
     Indication: Alopecia areata
     Route: 061
     Dates: start: 201712
  5. FINASTERIDE [Concomitant]
     Active Substance: FINASTERIDE
     Indication: Alopecia areata
     Dates: start: 202201
  6. RUXOLITINIB [Concomitant]
     Active Substance: RUXOLITINIB
     Indication: Alopecia areata
     Route: 061
     Dates: start: 202201
  7. MINOXIDIL [Concomitant]
     Active Substance: MINOXIDIL
     Indication: Alopecia areata
     Route: 061
     Dates: start: 201712
  8. MINOXIDIL [Concomitant]
     Active Substance: MINOXIDIL
     Route: 061
     Dates: start: 202201

REACTIONS (2)
  - Central serous chorioretinopathy [Recovering/Resolving]
  - Off label use [Unknown]

NARRATIVE: CASE EVENT DATE: 20220101
